FAERS Safety Report 9835303 (Version 2)
Quarter: 2014Q1

REPORT INFORMATION
  Report Type: Spontaneous
  Country: US (occurrence: US)
  Receive Date: 20140122
  Receipt Date: 20140210
  Transmission Date: 20141002
  Serious: Yes (Other)
  Sender: FDA-Public Use
  Company Number: US-BRISTOL-MYERS SQUIBB COMPANY-19925817

PATIENT
  Age: 67 Year
  Sex: Male

DRUGS (3)
  1. ELIQUIS [Suspect]
     Dosage: INITIALLY TAKEN ONCE A DAY,THEN INCREASED TO TWICE DAILY
  2. SOTALOL [Concomitant]
  3. BABY ASPIRIN [Concomitant]

REACTIONS (2)
  - Atrial fibrillation [Unknown]
  - Rash pruritic [Recovered/Resolved]
